FAERS Safety Report 4816820-5 (Version None)
Quarter: 2005Q4

REPORT INFORMATION
  Report Type: 
  Country: None (occurrence: None)
  Receive Date: 20051101
  Receipt Date: 20051028
  Transmission Date: 20060501
  Serious: Yes (Life-Threatening)
  Sender: FDA-Public Use
  Company Number: GB-BOEHRINGER INGELHEIM PHARMACEUTICALS, INC.-2005-UK-02196UK

PATIENT
  Age: 72 Year
  Sex: Male
  Weight: 100 kg

DRUGS (10)
  1. DIPYRIDAMOLE [Suspect]
     Route: 048
  2. PAROXETINE HCL [Suspect]
     Route: 048
  3. HEPARIN [Suspect]
     Route: 048
  4. ASPIRIN [Suspect]
     Route: 048
  5. SIMVASTATIN [Concomitant]
     Route: 048
  6. DOXAZOSIN [Concomitant]
     Route: 048
  7. METOPROLOL [Concomitant]
     Route: 048
  8. GLICLAZIDE [Concomitant]
     Route: 048
  9. OMEPRAZOLE [Concomitant]
     Route: 048
  10. AMLODIPINE [Concomitant]
     Dosage: 5-10MG
     Route: 048

REACTIONS (1)
  - GASTROINTESTINAL HAEMORRHAGE [None]
